FAERS Safety Report 8555604-1 (Version None)
Quarter: 2012Q3

REPORT INFORMATION
  Report Type: 
  Country: None (occurrence: None)
  Receive Date: 20120731
  Receipt Date: 20111017
  Transmission Date: 20120928
  Serious: No
  Sender: FDA-Public Use
  Company Number: US-ASTRAZENECA-2010SE39588

PATIENT
  Age: 46 Year
  Sex: Female
  Weight: 97.5 kg

DRUGS (4)
  1. ADVAIR [Concomitant]
  2. SEROQUEL XR [Suspect]
     Indication: BIPOLAR I DISORDER
     Route: 048
     Dates: start: 20100527, end: 20100809
  3. LITHIUM CARBONATE [Concomitant]
  4. ALBUTEROL [Concomitant]

REACTIONS (2)
  - INSOMNIA [None]
  - DRUG DOSE OMISSION [None]
